FAERS Safety Report 10234265 (Version 2)
Quarter: 2014Q2

REPORT INFORMATION
  Report Type: Spontaneous
  Country: FR (occurrence: FR)
  Receive Date: 20140612
  Receipt Date: 20140612
  Transmission Date: 20141212
  Serious: Yes (Hospitalization, Other)
  Sender: FDA-Public Use
  Company Number: FR-GE HEALTHCARE MEDICAL DIAGNOSTICS-VISP-PR-1405S-0231

PATIENT
  Age: 63 Year
  Sex: Male

DRUGS (2)
  1. VISIPAQUE [Suspect]
     Indication: PRODUCT USED FOR UNKNOWN INDICATION
     Route: 065
     Dates: start: 20140507, end: 20140507
  2. VISIPAQUE [Suspect]
     Indication: DIAGNOSTIC PROCEDURE

REACTIONS (1)
  - Angioedema [Recovered/Resolved]
